FAERS Safety Report 8857464 (Version 1)
Quarter: 2012Q4

REPORT INFORMATION
  Report Type: 
  Country: FR (occurrence: FR)
  Receive Date: 20121024
  Receipt Date: 20121024
  Transmission Date: 20130627
  Serious: Yes (Other)
  Sender: FDA-Public Use
  Company Number: FR-ASTRAZENECA-2012SE79996

PATIENT
  Age: 741 Month
  Sex: Female

DRUGS (1)
  1. CRESTOR [Suspect]
     Indication: CARDIOVASCULAR EVENT PROPHYLAXIS
     Route: 048
     Dates: start: 201208

REACTIONS (2)
  - Libido increased [Not Recovered/Not Resolved]
  - Pelvic pain [Not Recovered/Not Resolved]
